FAERS Safety Report 22160341 (Version 1)
Quarter: 2023Q1

REPORT INFORMATION
  Report Type: Spontaneous
  Country: US (occurrence: None)
  Receive Date: 20230330
  Receipt Date: 20230330
  Transmission Date: 20230418
  Serious: Yes (Other)
  Sender: FDA-Public Use
  Company Number: None

PATIENT
  Age: 34 Year
  Sex: Female
  Weight: 66.6 kg

DRUGS (2)
  1. SERTRALINE [Suspect]
     Active Substance: SERTRALINE HYDROCHLORIDE
     Indication: Depression
     Dosage: FREQUENCY : DAILY;?
  2. Sertraline 25mg daily [Concomitant]

REACTIONS (4)
  - Product substitution issue [None]
  - Anxiety [None]
  - Depression [None]
  - Tremor [None]

NARRATIVE: CASE EVENT DATE: 20230322
